FAERS Safety Report 5376559-7 (Version None)
Quarter: 2007Q2

REPORT INFORMATION
  Report Type: 
  Country: None (occurrence: None)
  Receive Date: 20070629
  Receipt Date: 20070619
  Transmission Date: 20071010
  Serious: Yes (Congenital Anomaly)
  Sender: FDA-Public Use
  Company Number: GXKR2007GB05281

PATIENT
  Sex: 0

DRUGS (3)
  1. FLUOXETINE [Suspect]
     Dosage: TRANSPLACENTAL
     Route: 064
  2. FERROUS SULPHATE (FERROUS SULFATE) [Concomitant]
  3. SALBUTAMOL (SALBUTAMOL) [Concomitant]

REACTIONS (2)
  - AUTISM [None]
  - DRUG EXPOSURE DURING PREGNANCY [None]
